FAERS Safety Report 7289945-5 (Version None)
Quarter: 2011Q1

REPORT INFORMATION
  Report Type: 
  Country: None (occurrence: None)
  Receive Date: 20110210
  Receipt Date: 20110210
  Transmission Date: 20110831
  Serious: No
  Sender: FDA-Public Use
  Company Number: None

PATIENT
  Age: 68 Year
  Sex: Male

DRUGS (1)
  1. ACITRETIN [Suspect]
     Dates: start: 20070901, end: 20090724

REACTIONS (9)
  - LIVER INJURY [None]
  - BLOOD BILIRUBIN INCREASED [None]
  - ANTINUCLEAR ANTIBODY POSITIVE [None]
  - JAUNDICE [None]
  - ALANINE AMINOTRANSFERASE INCREASED [None]
  - ASCITES [None]
  - ENCEPHALOPATHY [None]
  - ASPARTATE AMINOTRANSFERASE INCREASED [None]
  - FATIGUE [None]
